FAERS Safety Report 12791804 (Version 3)
Quarter: 2016Q4

REPORT INFORMATION
  Report Type: Spontaneous
  Country: FR (occurrence: FR)
  Receive Date: 20160929
  Receipt Date: 20161028
  Transmission Date: 20170207
  Serious: Yes (Hospitalization, Other)
  Sender: FDA-Public Use
  Company Number: FR-VIIV HEALTHCARE LIMITED-FR2016GSK140190

PATIENT
  Age: 28 Year
  Sex: Female

DRUGS (6)
  1. ANSATIPINE [Concomitant]
     Active Substance: RIFABUTIN
     Dosage: UNK
     Route: 048
     Dates: start: 20160728
  2. ETHAMBUTOL [Concomitant]
     Active Substance: ETHAMBUTOL HYDROCHLORIDE
     Dosage: UNK
     Route: 042
     Dates: start: 20160728
  3. PIRILENE [Concomitant]
     Active Substance: PYRAZINAMIDE
     Dosage: UNK
     Route: 048
     Dates: start: 20160728
  4. TRIUMEQ [Suspect]
     Active Substance: ABACAVIR SULFATE\DOLUTEGRAVIR SODIUM\LAMIVUDINE
     Indication: HIV INFECTION
     Dosage: 1 UNK, 1D
     Route: 048
     Dates: start: 20160826, end: 20160912
  5. RIMIFON [Concomitant]
     Active Substance: ISONIAZID
     Dosage: UNK
     Route: 042
     Dates: start: 20160728
  6. ZECLAR [Concomitant]
     Active Substance: CLARITHROMYCIN
     Dosage: 500 MG, BID
     Route: 065
     Dates: start: 20160728

REACTIONS (3)
  - Hallucination [Recovered/Resolved]
  - Paranoia [Recovered/Resolved]
  - Delirium [Recovered/Resolved]

NARRATIVE: CASE EVENT DATE: 20160905
